FAERS Safety Report 6455502-3 (Version None)
Quarter: 2009Q4

REPORT INFORMATION
  Report Type: 
  Country: None (occurrence: None)
  Receive Date: 20091125
  Receipt Date: 20090928
  Transmission Date: 20100525
  Serious: No
  Sender: FDA-Public Use
  Company Number: US-ABBOTT-09P-163-0600110-00

PATIENT
  Sex: Male
  Weight: 81.72 kg

DRUGS (1)
  1. SIMCOR [Suspect]
     Indication: BLOOD TRIGLYCERIDES INCREASED
     Dosage: 500MG/20 MG DAILY
     Dates: start: 20090601

REACTIONS (2)
  - FLUSHING [None]
  - PRURITUS [None]
